FAERS Safety Report 18488104 (Version 1)
Quarter: 2020Q4

REPORT INFORMATION
  Report Type: Spontaneous
  Country: US (occurrence: US)
  Receive Date: 20201110
  Receipt Date: 20201110
  Transmission Date: 20210114
  Serious: No
  Sender: FDA-Public Use
  Company Number: US-FOUNDATIONCONSUMERHC-2020-US-019760

PATIENT
  Age: 37 Year
  Sex: Female
  Weight: 110.68 kg

DRUGS (7)
  1. APPLE CIDER VINEAGAR [Concomitant]
  2. TURMERIC [Concomitant]
     Active Substance: HERBALS\TURMERIC
  3. UNSPECIFIED BIRTH CONTROL PILLS [Concomitant]
     Active Substance: UNSPECIFIED INGREDIENT
  4. PROBIOTIC [Concomitant]
     Active Substance: PROBIOTICS NOS
  5. PLAN B ONE-STEP [Suspect]
     Active Substance: LEVONORGESTREL
     Indication: POST COITAL CONTRACEPTION
     Dosage: 1.5 MG
     Route: 048
     Dates: start: 20200921, end: 20200921
  6. CRANBERRY. [Concomitant]
     Active Substance: CRANBERRY
  7. MUTLTI VITAMINS [Concomitant]

REACTIONS (3)
  - Menorrhagia [Not Recovered/Not Resolved]
  - Intentional product misuse [Recovered/Resolved]
  - Product use in unapproved indication [Recovered/Resolved]

NARRATIVE: CASE EVENT DATE: 20200921
